FAERS Safety Report 4341004-7 (Version None)
Quarter: 2004Q2

REPORT INFORMATION
  Report Type: 
  Country: None (occurrence: None)
  Receive Date: 20040413
  Receipt Date: 20040331
  Transmission Date: 20050107
  Serious: Yes (Other)
  Sender: FDA-Public Use
  Company Number: US-JNJFOC-20040400652

PATIENT
  Age: 27 Year
  Sex: Female
  Weight: 65.7716 kg

DRUGS (4)
  1. ORTHO EVRA [Suspect]
     Indication: CONTRACEPTION
     Dosage: 1 DOES(S), 3 IN 4 WEEK, TRANSDERMAL
     Route: 062
     Dates: start: 20031201
  2. ADVAIR (SERETIDE MITE) UNSPECIFIED [Concomitant]
  3. ALBUTEROL (SALBUTAMOL) UNSPECIFIED [Concomitant]
  4. ZYRTEC (CETIRIZINE HYDROCHLORIDE) UNSPECIFIED [Concomitant]

REACTIONS (4)
  - ANXIETY [None]
  - ASTHMA [None]
  - CONDITION AGGRAVATED [None]
  - NAUSEA [None]
